FAERS Safety Report 16854997 (Version 4)
Quarter: 2020Q3

REPORT INFORMATION
  Report Type: Spontaneous
  Country: JP (occurrence: JP)
  Receive Date: 20190926
  Receipt Date: 20200807
  Transmission Date: 20201102
  Serious: Yes (Life-Threatening, Hospitalization, Other)
  Sender: FDA-Public Use
  Company Number: JP-GLAXOSMITHKLINE-JP2019JPN169299

PATIENT
  Age: 24 Year
  Sex: Female
  Weight: 56 kg

DRUGS (1)
  1. FLOLAN [Suspect]
     Active Substance: EPOPROSTENOL SODIUM
     Indication: PULMONARY ARTERIAL HYPERTENSION
     Dosage: UNK
     Route: 041

REACTIONS (7)
  - Pulmonary hypertension [Recovering/Resolving]
  - Cardiac failure [Unknown]
  - Therapeutic product effect incomplete [Unknown]
  - Neutrophil count decreased [Unknown]
  - Palpitations [Unknown]
  - Hyperthyroidism [Recovering/Resolving]
  - Therapeutic response decreased [Unknown]
